FAERS Safety Report 4808322-7 (Version None)
Quarter: 2005Q4

REPORT INFORMATION
  Report Type: 
  Country: None (occurrence: None)
  Receive Date: 20051021
  Receipt Date: 20051017
  Transmission Date: 20060501
  Serious: Yes (Hospitalization)
  Sender: FDA-Public Use
  Company Number: DEWYE041010OCT05

PATIENT
  Age: 15 Year
  Sex: Female

DRUGS (3)
  1. LEVONORGESTREL + ETHINYL ESTRADIOL [Suspect]
     Indication: CONTRACEPTION
     Dosage: 1 TABLET; ORAL
     Route: 048
     Dates: start: 20040601, end: 20051001
  2. LEVONORGESTREL + ETHINYL ESTRADIOL [Suspect]
     Indication: DYSMENORRHOEA
     Dosage: 1 TABLET; ORAL
     Route: 048
     Dates: start: 20040601, end: 20051001
  3. LEVONORGESTREL + ETHINYL ESTRADIOL [Suspect]
     Indication: MENORRHAGIA
     Dosage: 1 TABLET; ORAL
     Route: 048
     Dates: start: 20040601, end: 20051001

REACTIONS (9)
  - ACTIVATED PARTIAL THROMBOPLASTIN TIME ABNORMAL [None]
  - BLOOD COUNT ABNORMAL [None]
  - BLOOD CULTURE POSITIVE [None]
  - BLOOD HOMOCYSTEINE ABNORMAL [None]
  - INTERNATIONAL NORMALISED RATIO DECREASED [None]
  - LABORATORY TEST ABNORMAL [None]
  - PROTHROMBIN TIME ABNORMAL [None]
  - STAPHYLOCOCCAL INFECTION [None]
  - VENOUS THROMBOSIS LIMB [None]
